FAERS Safety Report 9394696 (Version 3)
Quarter: 2014Q4

REPORT INFORMATION
  Report Type: Report from Study
  Country: FR (occurrence: FR)
  Receive Date: 20130711
  Receipt Date: 20141010
  Transmission Date: 20150529
  Serious: Yes (Hospitalization, Other)
  Sender: FDA-Public Use
  Company Number: FR-MPIJNJ-2013-05157

PATIENT

DRUGS (15)
  1. CELIPROLOL [Concomitant]
     Active Substance: CELIPROLOL
  2. DEXAMETHASONE. [Suspect]
     Active Substance: DEXAMETHASONE
     Indication: PLASMA CELL MYELOMA
     Dosage: 20 MG, UNK
     Route: 048
     Dates: start: 20130412
  3. CERIS [Concomitant]
     Active Substance: TROSPIUM CHLORIDE
     Indication: PRODUCT USED FOR UNKNOWN INDICATION
     Dosage: 100 MG, UNK
  4. VELCADE [Suspect]
     Active Substance: BORTEZOMIB
     Indication: PLASMA CELL MYELOMA
     Dosage: UNK
     Route: 042
     Dates: start: 20130412
  5. VOLTAREN [Concomitant]
     Active Substance: DICLOFENAC SODIUM
     Indication: PRODUCT USED FOR UNKNOWN INDICATION
  6. PROFENID                           /00321701/ [Concomitant]
     Indication: PRODUCT USED FOR UNKNOWN INDICATION
  7. TAMSULOSINE HCL A [Concomitant]
     Indication: PRODUCT USED FOR UNKNOWN INDICATION
  8. NOVONORM [Concomitant]
     Active Substance: REPAGLINIDE
  9. PIASCLEDINE                        /00809501/ [Concomitant]
     Active Substance: AVOCADO OIL\SOYBEAN OIL
     Indication: PRODUCT USED FOR UNKNOWN INDICATION
     Dosage: 300 MG, UNK
  10. METFORMINE [Concomitant]
     Active Substance: METFORMIN HYDROCHLORIDE
  11. MORPHINE SULFATE. [Suspect]
     Active Substance: MORPHINE SULFATE
     Indication: PRODUCT USED FOR UNKNOWN INDICATION
     Dosage: UNK
     Route: 048
     Dates: start: 20130415, end: 20130422
  12. KARDEGIC [Concomitant]
     Active Substance: ASPIRIN LYSINE
  13. ATORVASTATIN [Concomitant]
     Active Substance: ATORVASTATIN
  14. COAPROVEL [Concomitant]
     Active Substance: HYDROCHLOROTHIAZIDE\IRBESARTAN
  15. NOVOMIX                            /01475801/ [Concomitant]
     Active Substance: INSULIN ASPART

REACTIONS (2)
  - Subileus [Recovered/Resolved]
  - Peripheral sensorimotor neuropathy [Recovering/Resolving]

NARRATIVE: CASE EVENT DATE: 20130424
